FAERS Safety Report 7462801-5 (Version None)
Quarter: 2011Q2

REPORT INFORMATION
  Report Type: 
  Country: None (occurrence: None)
  Receive Date: 20110506
  Receipt Date: 20110418
  Transmission Date: 20111010
  Serious: No
  Sender: FDA-Public Use
  Company Number: US-BAYER-2011-033865

PATIENT

DRUGS (2)
  1. AVELOX [Suspect]
     Indication: BRONCHITIS
     Dosage: 400 MG, QD
     Route: 048
  2. AVELOX [Suspect]
     Indication: PNEUMONIA

REACTIONS (3)
  - AGEUSIA [None]
  - OEDEMA MOUTH [None]
  - SWOLLEN TONGUE [None]
